FAERS Safety Report 6803073-1 (Version None)
Quarter: 2010Q2

REPORT INFORMATION
  Report Type: 
  Country: None (occurrence: None)
  Receive Date: 20100628
  Receipt Date: 20100616
  Transmission Date: 20101027
  Serious: Yes (Hospitalization)
  Sender: FDA-Public Use
  Company Number: US-SANOFI-AVENTIS-2010SA034613

PATIENT
  Age: 62 Year
  Sex: Female

DRUGS (5)
  1. OXALIPLATIN [Suspect]
     Indication: GASTRIC CANCER
     Route: 041
     Dates: start: 20091221, end: 20091221
  2. OXALIPLATIN [Suspect]
     Route: 041
  3. CETUXIMAB [Suspect]
     Indication: GASTRIC CANCER
     Route: 041
     Dates: start: 20091221, end: 20091221
  4. CETUXIMAB [Suspect]
     Route: 041
  5. CAPECITABINE [Suspect]
     Indication: GASTRIC CANCER
     Route: 048
     Dates: start: 20091221

REACTIONS (2)
  - FRACTURED SACRUM [None]
  - LUMBAR VERTEBRAL FRACTURE [None]
